FAERS Safety Report 4374911-X (Version None)
Quarter: 2004Q2

REPORT INFORMATION
  Report Type: 
  Country: None (occurrence: None)
  Receive Date: 20040609
  Receipt Date: 20040528
  Transmission Date: 20050107
  Serious: Yes (Hospitalization)
  Sender: FDA-Public Use
  Company Number: PHRM2004FR01955

PATIENT
  Age: 71 Year
  Sex: Female
  Weight: 47 kg

DRUGS (6)
  1. NEORAL [Suspect]
     Indication: RENAL TRANSPLANT
     Dosage: 50 MG, BID
     Route: 048
     Dates: start: 19950125, end: 20030422
  2. RAPAMUNE [Suspect]
     Dosage: 2 MG, DAILY
     Route: 048
     Dates: start: 20030402, end: 20030422
  3. ATENOLOL [Concomitant]
     Indication: ESSENTIAL HYPERTENSION
     Dosage: 1 DF, BID
     Route: 048
  4. ALLOPURINOL TAB [Concomitant]
     Indication: GOUT
     Dosage: 1 DF, DAILY
     Route: 048
  5. EUPRESSYL [Concomitant]
     Indication: ESSENTIAL HYPERTENSION
     Dosage: 60 MG, BID
     Route: 048
  6. ZESTRIL [Concomitant]
     Indication: ESSENTIAL HYPERTENSION
     Dosage: 5 MG, BID
     Route: 048

REACTIONS (4)
  - ALVEOLITIS [None]
  - DRUG LEVEL INCREASED [None]
  - INTERSTITIAL LUNG DISEASE [None]
  - LYMPHOCYTOSIS [None]
